FAERS Safety Report 10073756 (Version 1)
Quarter: 2014Q2

REPORT INFORMATION
  Report Type: Report from Study
  Country: US (occurrence: US)
  Receive Date: 20140411
  Receipt Date: 20140411
  Transmission Date: 20141212
  Serious: No
  Sender: FDA-Public Use
  Company Number: US-BAXTER-2012BAX014085

PATIENT
  Sex: Female

DRUGS (1)
  1. GAMMAGARD LIQUID [Suspect]
     Indication: SELECTIVE IGA IMMUNODEFICIENCY
     Route: 042

REACTIONS (2)
  - Muscle spasms [Unknown]
  - Asthenia [Unknown]
